FAERS Safety Report 15651877 (Version 3)
Quarter: 2019Q1

REPORT INFORMATION
  Report Type: Spontaneous
  Country: DE (occurrence: DE)
  Receive Date: 20181123
  Receipt Date: 20190208
  Transmission Date: 20190417
  Serious: Yes (Other)
  Sender: FDA-Public Use
  Company Number: DE-TEVA-2018-DE-977124

PATIENT
  Sex: Female
  Weight: 79 kg

DRUGS (13)
  1. ULTIBRO [Concomitant]
     Active Substance: GLYCOPYRRONIUM\INDACATEROL
     Dosage: 1 DF CONTAINS 85 MICROGRAMM INDACATEROL PLUS 43 MICROGRAMM GLYCOPYRRONIUM, 1-0-0 ONCE DAILY
     Dates: start: 20160104
  2. MCP [Concomitant]
     Active Substance: METOCLOPRAMIDE HYDROCHLORIDE
     Route: 048
     Dates: start: 20160322
  3. VALSARTAN ABZ 80 MG [Suspect]
     Active Substance: VALSARTAN
     Indication: HYPERTENSION
     Dosage: 0-0-1 DAILY DOSE AND 1-0-1 (IF NEEDED)
     Route: 048
     Dates: start: 20150303, end: 201805
  4. SORMODREN [Concomitant]
     Active Substance: BORNAPRINE HYDROCHLORIDE
  5. AZITHROBETA [Concomitant]
     Active Substance: AZITHROMYCIN
     Dosage: 1-0-0 DAILY
     Dates: start: 20150311, end: 20150313
  6. TRAMADOL. [Concomitant]
     Active Substance: TRAMADOL
     Dates: start: 20150311
  7. PREDNIHEXAL [Concomitant]
     Active Substance: PREDNISOLONE ACETATE
     Dates: start: 20150521
  8. ZOLEDRON 4 MG/100 ML [Concomitant]
     Route: 042
     Dates: start: 20170106
  9. DECORTIN 20 [Concomitant]
     Route: 048
     Dates: start: 20131223
  10. PAROXETIN [Concomitant]
     Active Substance: PAROXETINE HYDROCHLORIDE
     Route: 048
     Dates: start: 20160822
  11. OMEPRAZOL [Concomitant]
     Active Substance: OMEPRAZOLE
     Dosage: 1-0-0 ONCE DAILY, IF NEEDED
     Dates: start: 20140425
  12. IBEROGAST [Concomitant]
     Active Substance: HERBALS
     Dosage: 60 GTT DAILY;
     Dates: start: 20160111
  13. PANGROL 40 000 [Concomitant]
     Route: 048
     Dates: start: 20160322

REACTIONS (5)
  - Breast cancer metastatic [Not Recovered/Not Resolved]
  - Dyspnoea [Not Recovered/Not Resolved]
  - Product impurity [Unknown]
  - Decreased activity [Not Recovered/Not Resolved]
  - Asthma [Unknown]

NARRATIVE: CASE EVENT DATE: 2016
